FAERS Safety Report 16383904 (Version 2)
Quarter: 2020Q2

REPORT INFORMATION
  Report Type: Spontaneous
  Country: IE (occurrence: IE)
  Receive Date: 20190603
  Receipt Date: 20200622
  Transmission Date: 20200713
  Serious: Yes (Hospitalization, Other)
  Sender: FDA-Public Use
  Company Number: IE-PFIZER INC-2019229085

PATIENT
  Age: 87 Year
  Sex: Female

DRUGS (9)
  1. AMLODIPINE [Concomitant]
     Active Substance: AMLODIPINE BESYLATE
     Indication: HYPERTENSION
     Dosage: 5 MG, DAILY (EVERY 24 HOURS)
  2. ASPIRIN EC [Concomitant]
     Active Substance: ASPIRIN
     Indication: PROPHYLAXIS
     Dosage: 75 MG, DAILY (EVERY 24 HOURS)
  3. SENOKOT [Concomitant]
     Active Substance: SENNOSIDES
     Indication: CONSTIPATION
     Dosage: 1 DF, DAILY (AT NIGHT)
  4. LINEZOLID. [Suspect]
     Active Substance: LINEZOLID
     Indication: STAPHYLOCOCCAL BACTERAEMIA
     Dosage: 600 MG, 2X/DAY (EVERY 12 HOURS)
     Route: 048
     Dates: start: 20190402, end: 20190418
  5. PREGABALIN. [Concomitant]
     Active Substance: PREGABALIN
     Dosage: UNK
  6. ATORVASTATIN CALCIUM. [Concomitant]
     Active Substance: ATORVASTATIN CALCIUM
     Indication: HYPERLIPIDAEMIA
     Dosage: 10 MG, DAILY (EVERY 24 HOURS)
  7. ESOMEPRAZOLE. [Concomitant]
     Active Substance: ESOMEPRAZOLE MAGNESIUM
     Dosage: 40 MG, 1X/DAY (PPI COVER)
  8. PREGABALIN. [Concomitant]
     Active Substance: PREGABALIN
     Dosage: UNK
  9. MIRTAZAPINE. [Concomitant]
     Active Substance: MIRTAZAPINE
     Indication: DEPRESSION
     Dosage: 15 MG, DAILY (EVERY 24 HOURS)

REACTIONS (2)
  - Pancytopenia [Recovered/Resolved]
  - Sepsis [Recovered/Resolved]

NARRATIVE: CASE EVENT DATE: 20190418
